FAERS Safety Report 4641308-4 (Version None)
Quarter: 2005Q2

REPORT INFORMATION
  Report Type: 
  Country: None (occurrence: None)
  Receive Date: 20050419
  Receipt Date: 20050405
  Transmission Date: 20051028
  Serious: Yes (Death, Hospitalization)
  Sender: FDA-Public Use
  Company Number: 03P-144-0234542-00

PATIENT
  Age: 50 Year
  Sex: Female
  Weight: 97 kg

DRUGS (11)
  1. HUMIRA [Suspect]
     Indication: RHEUMATOID ARTHRITIS
     Dosage: 40 MG, 1 IN 2 WK, SUBCUTANEOUS
     Route: 058
     Dates: start: 20030217, end: 20030615
  2. HYDROXYCHLOROQUINE SULFATE [Concomitant]
  3. METHOTREXATE [Concomitant]
  4. SODIUM AUROTHIOMALATE [Concomitant]
  5. TRAMADOL HCL [Concomitant]
  6. ALLOPURINOL [Concomitant]
  7. ETIDRONATE DISODIUM [Concomitant]
  8. LEKOVIT CA [Concomitant]
  9. OMEPRAZOLE [Concomitant]
  10. LEFLUNOMIDE [Concomitant]
  11. METHYLPREDNISOLONE [Concomitant]

REACTIONS (17)
  - ACINETOBACTER INFECTION [None]
  - BRAIN ABSCESS [None]
  - BRAIN HERNIATION [None]
  - BRAIN OEDEMA [None]
  - CEREBRAL HAEMORRHAGE [None]
  - CEREBRAL INFARCTION [None]
  - CEREBRAL ISCHAEMIA [None]
  - CSF GLUCOSE DECREASED [None]
  - CSF PROTEIN INCREASED [None]
  - DEPRESSED LEVEL OF CONSCIOUSNESS [None]
  - ENCEPHALITIS [None]
  - HYDROCEPHALUS [None]
  - OTITIS MEDIA [None]
  - PNEUMONIA [None]
  - STAPHYLOCOCCAL INFECTION [None]
  - SUBDURAL EMPYEMA [None]
  - TRACHEOBRONCHITIS [None]
